FAERS Safety Report 14570076 (Version 2)
Quarter: 2018Q1

REPORT INFORMATION
  Report Type: Spontaneous
  Country: US (occurrence: US)
  Receive Date: 20180225
  Receipt Date: 20180227
  Transmission Date: 20180509
  Serious: No
  Sender: FDA-Public Use
  Company Number: US-009507513-1802USA006362

PATIENT
  Sex: Female

DRUGS (1)
  1. BELSOMRA [Suspect]
     Active Substance: SUVOREXANT
     Dosage: ONE 20 MG TABLET/DAILY BY MOUTH
     Route: 048

REACTIONS (3)
  - Drug dose omission [Unknown]
  - Back disorder [Unknown]
  - Insomnia [Unknown]
